FAERS Safety Report 16920656 (Version 1)
Quarter: 2019Q4

REPORT INFORMATION
  Report Type: Spontaneous
  Country: US (occurrence: US)
  Receive Date: 20191015
  Receipt Date: 20191015
  Transmission Date: 20200122
  Serious: Yes (Other)
  Sender: FDA-Public Use
  Company Number: US-TEVA-2019-US-1121657

PATIENT
  Age: 54 Year
  Sex: Female

DRUGS (6)
  1. INFLIXIMAB [Suspect]
     Active Substance: INFLIXIMAB
     Indication: RHEUMATOID ARTHRITIS
     Route: 065
     Dates: start: 2014, end: 2017
  2. INFLIXIMAB [Suspect]
     Active Substance: INFLIXIMAB
     Indication: SJOGREN^S SYNDROME
  3. METHOTREXATE. [Suspect]
     Active Substance: METHOTREXATE
     Indication: SJOGREN^S SYNDROME
  4. ETANERCEPT [Suspect]
     Active Substance: ETANERCEPT
     Indication: RHEUMATOID ARTHRITIS
     Route: 065
     Dates: start: 2014, end: 2017
  5. METHOTREXATE. [Suspect]
     Active Substance: METHOTREXATE
     Indication: RHEUMATOID ARTHRITIS
     Route: 065
     Dates: start: 2014, end: 2017
  6. ETANERCEPT [Suspect]
     Active Substance: ETANERCEPT
     Indication: SJOGREN^S SYNDROME

REACTIONS (3)
  - Iatrogenic infection [Recovering/Resolving]
  - Marginal zone lymphoma [Recovering/Resolving]
  - Epstein-Barr virus associated lymphoma [Recovering/Resolving]

NARRATIVE: CASE EVENT DATE: 2017
